FAERS Safety Report 24025439 (Version 2)
Quarter: 2024Q3

REPORT INFORMATION
  Report Type: Spontaneous
  Country: US (occurrence: US)
  Receive Date: 20240628
  Receipt Date: 20240710
  Transmission Date: 20241016
  Serious: No
  Sender: ROCHE
  Company Number: US-ROCHE-3415650

PATIENT
  Sex: Female

DRUGS (1)
  1. PHESGO [Suspect]
     Active Substance: HYALURONIDASE-ZZXF\PERTUZUMAB\TRASTUZUMAB
     Indication: HER2 positive breast cancer
     Dosage: YES
     Route: 058

REACTIONS (2)
  - Product administration error [Unknown]
  - No adverse event [Unknown]

NARRATIVE: CASE EVENT DATE: 20230831
